FAERS Safety Report 4885570-1 (Version None)
Quarter: 2006Q1

REPORT INFORMATION
  Report Type: 
  Country: None (occurrence: None)
  Receive Date: 20060119
  Receipt Date: 20050414
  Transmission Date: 20060701
  Serious: Yes (Hospitalization, Other)
  Sender: FDA-Public Use
  Company Number: US-MERCK-0504USA02974

PATIENT
  Age: 58 Year
  Sex: Female
  Weight: 95 kg

DRUGS (13)
  1. VIOXX [Suspect]
     Indication: RHEUMATOID ARTHRITIS
     Route: 048
     Dates: start: 19990101, end: 20040101
  2. WARFARIN [Concomitant]
     Route: 065
     Dates: start: 20000101
  3. MAVIK [Concomitant]
     Indication: HYPERTENSION
     Route: 065
     Dates: start: 20010101
  4. MAVIK [Concomitant]
     Indication: CARDIAC DISORDER
     Route: 065
     Dates: start: 20010101
  5. RANITIDINE [Concomitant]
     Route: 065
  6. TOPROL-XL [Concomitant]
     Route: 065
     Dates: start: 20000101, end: 20030101
  7. ACETAMINOPHEN AND HYDROCODONE BITARTRATE [Concomitant]
     Route: 065
     Dates: start: 19980101, end: 20040101
  8. SPIRONOLACTONE [Concomitant]
     Route: 065
  9. AMITRIPTYLINE HYDROCHLORIDE [Concomitant]
     Route: 065
  10. SOTALOL HYDROCHLORIDE [Concomitant]
     Route: 065
  11. FUROSEMIDE [Concomitant]
     Route: 065
     Dates: start: 20030101
  12. POTASSIUM (UNSPECIFIED) [Concomitant]
     Route: 065
  13. PAROXETINE [Concomitant]
     Route: 065

REACTIONS (9)
  - ARRHYTHMIA [None]
  - BREAST CANCER [None]
  - CARDIAC FAILURE CONGESTIVE [None]
  - CEREBROVASCULAR ACCIDENT [None]
  - DIABETES MELLITUS [None]
  - DYSPNOEA [None]
  - MYOCARDIAL INFARCTION [None]
  - OEDEMA PERIPHERAL [None]
  - THYROID DISORDER [None]
